FAERS Safety Report 7379153-1 (Version None)
Quarter: 2011Q1

REPORT INFORMATION
  Report Type: 
  Country: None (occurrence: None)
  Receive Date: 20110328
  Receipt Date: 20110315
  Transmission Date: 20110831
  Serious: Yes (Other)
  Sender: FDA-Public Use
  Company Number: PHHY2010DE83952

PATIENT
  Age: 60 Year
  Sex: Male

DRUGS (1)
  1. MYCOPHENOLIC ACID [Suspect]
     Indication: RENAL TRANSPLANT
     Dosage: 1440 MG, PER DAY
     Route: 048
     Dates: start: 20080330

REACTIONS (3)
  - KIDNEY TRANSPLANT REJECTION [None]
  - DEEP VEIN THROMBOSIS [None]
  - LYMPHOCELE [None]
